FAERS Safety Report 13429166 (Version 4)
Quarter: 2019Q1

REPORT INFORMATION
  Report Type: Spontaneous
  Country: TR (occurrence: TR)
  Receive Date: 20170411
  Receipt Date: 20190201
  Transmission Date: 20190417
  Serious: Yes (Hospitalization, Other)
  Sender: FDA-Public Use
  Company Number: PHHY2017TR053518

PATIENT
  Age: 3 Year
  Sex: Male

DRUGS (1)
  1. EXELON [Suspect]
     Active Substance: RIVASTIGMINE TARTRATE
     Indication: PRODUCT USED FOR UNKNOWN INDICATION
     Dosage: 2 MG/1 ML, 12 MG OF RIVASTIGMINE
     Route: 048

REACTIONS (18)
  - Somnolence [Recovered/Resolved]
  - Increased bronchial secretion [Recovered/Resolved]
  - Hyporeflexia [Recovered/Resolved]
  - Asthenia [Recovered/Resolved]
  - Muscle contractions involuntary [Recovered/Resolved]
  - Neutrophilia [Recovered/Resolved]
  - Rales [Recovered/Resolved]
  - Malaise [Recovered/Resolved]
  - Leukocytosis [Recovered/Resolved]
  - Hypotonic-hyporesponsive episode [Recovered/Resolved]
  - Lacrimation increased [Recovered/Resolved]
  - Toxicity to various agents [Recovered/Resolved]
  - Salivary hypersecretion [Recovered/Resolved]
  - Hyperglycaemia [Recovered/Resolved]
  - Miosis [Recovered/Resolved]
  - Accidental exposure to product [Recovered/Resolved]
  - Cholinergic syndrome [Recovered/Resolved]
  - Hyperhidrosis [Recovered/Resolved]
